FAERS Safety Report 23242896 (Version 6)
Quarter: 2025Q2

REPORT INFORMATION
  Report Type: Report from Study
  Country: GB (occurrence: GB)
  Receive Date: 20231129
  Receipt Date: 20250619
  Transmission Date: 20250717
  Serious: Yes (Death, Other)
  Sender: TAKEDA
  Company Number: GB-TAKEDA-GB201838111

PATIENT
  Sex: Male

DRUGS (13)
  1. VELAGLUCERASE ALFA [Suspect]
     Active Substance: VELAGLUCERASE ALFA
     Indication: Gaucher^s disease
     Dosage: 49.1 INTERNATIONAL UNIT/KILOGRAM, Q2WEEKS
     Dates: start: 20110216
  2. PROPRANOLOL [Concomitant]
     Active Substance: PROPRANOLOL HYDROCHLORIDE
     Indication: Product used for unknown indication
     Dosage: 10 MILLIGRAM, BID
     Dates: start: 20030708
  3. FUROSEMIDE [Concomitant]
     Active Substance: FUROSEMIDE
     Indication: Product used for unknown indication
     Dosage: 20 MILLIGRAM, QD
     Dates: start: 20071228
  4. TIOTROPIUM BROMIDE [Concomitant]
     Active Substance: TIOTROPIUM BROMIDE
     Indication: Product used for unknown indication
     Dosage: 18 MICROGRAM, QD
     Dates: start: 20150319
  5. CALCIUM CARBONATE\CHOLECALCIFEROL [Concomitant]
     Active Substance: CALCIUM CARBONATE\CHOLECALCIFEROL
     Indication: Product used for unknown indication
     Dosage: UNK UNK, BID
     Dates: start: 20150619
  6. PENICILLIN V [Concomitant]
     Active Substance: PENICILLIN V
     Indication: Product used for unknown indication
     Dosage: 250 MILLIGRAM, BID
     Dates: start: 20160202
  7. NAPROXEN [Concomitant]
     Active Substance: NAPROXEN
     Indication: Arthralgia
  8. ACETAMINOPHEN [Concomitant]
     Active Substance: ACETAMINOPHEN
     Indication: Prophylaxis
     Dates: start: 20180614, end: 20180620
  9. TRAMADOL [Concomitant]
     Active Substance: TRAMADOL
     Indication: Prophylaxis
     Dates: start: 20180614, end: 20180620
  10. MOVICOL [Concomitant]
     Active Substance: POLYETHYLENE GLYCOL 3350\POTASSIUM CHLORIDE\SODIUM BICARBONATE\SODIUM CHLORIDE
     Indication: Prophylaxis
     Dosage: UNK UNK, BID
     Dates: start: 20180614, end: 20180620
  11. PENICILLIN [Concomitant]
     Active Substance: PENICILLIN
     Dosage: 250 MILLIGRAM, BID
     Dates: start: 201810
  12. CALCIUM [Concomitant]
     Active Substance: CALCIUM
  13. VITAMIN D [Concomitant]
     Active Substance: VITAMIN D NOS

REACTIONS (2)
  - Death [Fatal]
  - Plasma cell myeloma [Unknown]

NARRATIVE: CASE EVENT DATE: 20180509
